FAERS Safety Report 7283047-X (Version None)
Quarter: 2011Q1

REPORT INFORMATION
  Report Type: 
  Country: None (occurrence: None)
  Receive Date: 20110204
  Receipt Date: 20110204
  Transmission Date: 20110831
  Serious: No
  Sender: FDA-Public Use
  Company Number: None

PATIENT
  Age: 40 Year
  Sex: Female
  Weight: 81.1939 kg

DRUGS (2)
  1. CYMBALTA [Suspect]
     Indication: MIGRAINE
     Dosage: 30MG QD ORAL
     Route: 048
     Dates: start: 20100701, end: 20101015
  2. CYMBALTA [Suspect]
     Indication: PAIN
     Dosage: 30MG QD ORAL
     Route: 048
     Dates: start: 20100701, end: 20101015

REACTIONS (3)
  - NAUSEA [None]
  - VOMITING [None]
  - LIVER FUNCTION TEST ABNORMAL [None]
